FAERS Safety Report 7569167-0 (Version None)
Quarter: 2011Q2

REPORT INFORMATION
  Report Type: 
  Country: None (occurrence: None)
  Receive Date: 20110623
  Receipt Date: 20110610
  Transmission Date: 20111010
  Serious: Yes (Other)
  Sender: FDA-Public Use
  Company Number: PHHY2011US51249

PATIENT
  Sex: Female

DRUGS (1)
  1. GENTEAL MODERATE LUBRICANT EYE DROPS [Suspect]
     Dosage: UNK UKN, OT

REACTIONS (2)
  - BLOOD PRESSURE INCREASED [None]
  - PHOTOPHOBIA [None]
